FAERS Safety Report 9928208 (Version 2)
Quarter: 2014Q1

REPORT INFORMATION
  Report Type: Spontaneous
  Country: JP (occurrence: JP)
  Receive Date: 20140227
  Receipt Date: 20140227
  Transmission Date: 20141002
  Serious: Yes (Hospitalization)
  Sender: FDA-Public Use
  Company Number: JP-JNJFOC-20140114536

PATIENT
  Age: 64 Year
  Sex: Female

DRUGS (3)
  1. TRAMCET [Suspect]
     Indication: PAIN
     Route: 048
     Dates: start: 201401, end: 201401
  2. MYONAL [Concomitant]
     Route: 048
     Dates: start: 201401
  3. PRIMPERAN [Concomitant]
     Route: 048
     Dates: start: 201401

REACTIONS (4)
  - Spinal column stenosis [Unknown]
  - Gait disturbance [Not Recovered/Not Resolved]
  - Dizziness [Not Recovered/Not Resolved]
  - Asthenia [Not Recovered/Not Resolved]
